FAERS Safety Report 8158001-6 (Version None)
Quarter: 2012Q1

REPORT INFORMATION
  Report Type: 
  Country: None (occurrence: None)
  Receive Date: 20120222
  Receipt Date: 20120215
  Transmission Date: 20120608
  Serious: Yes (Other)
  Sender: FDA-Public Use
  Company Number: PHHY2012FR013822

PATIENT
  Age: 50 Year
  Sex: Female

DRUGS (2)
  1. ONBREZ [Suspect]
     Dosage: UNK
  2. CORTICOSTEROIDS [Suspect]
     Dosage: UNK

REACTIONS (3)
  - RASH [None]
  - HOT FLUSH [None]
  - HYPERTENSION [None]
